FAERS Safety Report 4800983-1 (Version None)
Quarter: 2005Q4

REPORT INFORMATION
  Report Type: 
  Country: None (occurrence: None)
  Receive Date: 20051012
  Receipt Date: 20050929
  Transmission Date: 20060501
  Serious: Yes (Death)
  Sender: FDA-Public Use
  Company Number: 2005128826

PATIENT
  Age: 21 Year
  Sex: Female

DRUGS (5)
  1. DOXORUBICIN HCL [Suspect]
     Indication: ILL-DEFINED DISORDER
  2. CYTARABINE [Suspect]
     Indication: ACUTE MYELOID LEUKAEMIA
     Dates: start: 19940101
  3. DAUNORUBICIN HCL [Suspect]
     Indication: ACUTE MYELOID LEUKAEMIA
     Dates: start: 19940101
  4. ETOPOSIDE [Suspect]
     Indication: ACUTE MYELOID LEUKAEMIA
     Dates: start: 19940101
  5. TRETINOIN [Suspect]
     Indication: ACUTE MYELOID LEUKAEMIA
     Dates: start: 19940101

REACTIONS (12)
  - CARDIAC PERFORATION [None]
  - CONGESTIVE CARDIOMYOPATHY [None]
  - ENCEPHALOPATHY [None]
  - GENERAL PHYSICAL HEALTH DETERIORATION [None]
  - HEPATIC CONGESTION [None]
  - HEPATIC NECROSIS [None]
  - JAUNDICE [None]
  - JUGULAR VEIN THROMBOSIS [None]
  - MULTI-ORGAN FAILURE [None]
  - RENAL FAILURE [None]
  - VENOOCCLUSIVE LIVER DISEASE [None]
  - WEIGHT INCREASED [None]
